FAERS Safety Report 6195350-5 (Version None)
Quarter: 2009Q2

REPORT INFORMATION
  Report Type: 
  Country: None (occurrence: None)
  Receive Date: 20090519
  Receipt Date: 20090512
  Transmission Date: 20091009
  Serious: Yes (Hospitalization)
  Sender: FDA-Public Use
  Company Number: US-ELI_LILLY_AND_COMPANY-US200905002558

PATIENT
  Age: 64 Year
  Sex: Female

DRUGS (2)
  1. FORTEO [Suspect]
     Dosage: 20 UG, DAILY (1/D)
     Dates: end: 20080301
  2. FORTEO [Suspect]
     Dates: start: 20080601

REACTIONS (4)
  - ACCIDENTAL OVERDOSE [None]
  - LUNG DISORDER [None]
  - LUNG INFECTION [None]
  - MEDICATION ERROR [None]
